FAERS Safety Report 13716822 (Version 4)
Quarter: 2017Q3

REPORT INFORMATION
  Report Type: Spontaneous
  Country: CN (occurrence: CN)
  Receive Date: 20170705
  Receipt Date: 20170719
  Transmission Date: 20171127
  Serious: Yes (Other)
  Sender: FDA-Public Use
  Company Number: CN-ASTRAZENECA-2017SE61327

PATIENT
  Age: 67 Year
  Sex: Male

DRUGS (6)
  1. NIFEDIPINE. [Concomitant]
     Active Substance: NIFEDIPINE
     Indication: HYPERTENSION
  2. OMEPRAZOLE. [Suspect]
     Active Substance: OMEPRAZOLE
     Indication: PROPHYLAXIS
     Dosage: IN THE MORNING
     Route: 048
  3. RABEPRAZOLE [Concomitant]
     Active Substance: RABEPRAZOLE
     Indication: GASTROOESOPHAGEAL REFLUX DISEASE
     Dates: start: 201702, end: 201705
  4. ASPIRIN. [Concomitant]
     Active Substance: ASPIRIN
  5. BRILINTA [Suspect]
     Active Substance: TICAGRELOR
     Route: 048
  6. OMEPRAZOLE SODIUM [Suspect]
     Active Substance: OMEPRAZOLE SODIUM
     Dosage: IT WAS UNCLEAR WHETHER IT WAS ASTRAZENECA PRODUCT OR NOT
     Route: 042

REACTIONS (5)
  - Dyspnoea [Recovering/Resolving]
  - Abdominal distension [Recovered/Resolved]
  - Gingival bleeding [Unknown]
  - Myocardial infarction [Recovered/Resolved]
  - Contusion [Recovered/Resolved]

NARRATIVE: CASE EVENT DATE: 2017
